FAERS Safety Report 9478793 (Version 1)
Quarter: 2013Q3

REPORT INFORMATION
  Report Type: Spontaneous
  Country: US (occurrence: US)
  Receive Date: 20130827
  Receipt Date: 20130827
  Transmission Date: 20140515
  Serious: No
  Sender: FDA-Public Use
  Company Number: US-009507513-1308USA004633

PATIENT
  Age: 18 Year
  Sex: Female
  Weight: 79.37 kg

DRUGS (2)
  1. NUVARING [Suspect]
     Indication: CONTRACEPTION
     Dosage: ONE FOR THREE WEEKS AND THEN RING FREE FOR ONE WEEK
     Route: 067
     Dates: start: 201305
  2. STELARA [Concomitant]

REACTIONS (2)
  - Device expulsion [Unknown]
  - No adverse event [Unknown]
